FAERS Safety Report 15987202 (Version 1)
Quarter: 2019Q1

REPORT INFORMATION
  Report Type: Spontaneous
  Country: CA (occurrence: CA)
  Receive Date: 20190220
  Receipt Date: 20190220
  Transmission Date: 20190418
  Serious: Yes (Hospitalization, Other)
  Sender: FDA-Public Use
  Company Number: CA-PFIZER INC-2019072117

PATIENT
  Age: 13 Year
  Sex: Male
  Weight: 58 kg

DRUGS (7)
  1. HYDROCORTISONE. [Concomitant]
     Active Substance: HYDROCORTISONE
     Dosage: 10 MG, 1X/DAY (1 EVERY 1 DAY)
     Route: 048
  2. DESMOPRESSIN [Concomitant]
     Active Substance: DESMOPRESSIN
     Indication: FLUID IMBALANCE
     Dosage: 0.1 MG, UNK
     Route: 048
  3. ONDANSETRON [Concomitant]
     Active Substance: ONDANSETRON
     Indication: NAUSEA
     Dosage: 8 MG, 3X/DAY ((1 EVERY 8 HOUR) )
     Route: 048
  4. LEVOTHYROXINE. [Concomitant]
     Active Substance: LEVOTHYROXINE
     Dosage: 0.075 MG, 1X/DAY (1 EVERY 1 DAY)
     Route: 048
  5. ETOPOSIDE. [Suspect]
     Active Substance: ETOPOSIDE
     Indication: CNS GERMINOMA
     Dosage: 230 MG, UNK
     Route: 042
  6. ETOPOSIDE. [Suspect]
     Active Substance: ETOPOSIDE
     Dosage: UNK
     Route: 042
  7. CARBOPLATIN. [Suspect]
     Active Substance: CARBOPLATIN
     Indication: CNS GERMINOMA
     Dosage: 930 MG, UNK
     Route: 042

REACTIONS (4)
  - Oropharyngeal pain [Not Recovered/Not Resolved]
  - Rash [Not Recovered/Not Resolved]
  - Anaphylactic reaction [Not Recovered/Not Resolved]
  - Flushing [Not Recovered/Not Resolved]
